FAERS Safety Report 7642731-6 (Version None)
Quarter: 2011Q3

REPORT INFORMATION
  Report Type: 
  Country: None (occurrence: None)
  Receive Date: 20110728
  Receipt Date: 20110726
  Transmission Date: 20111222
  Serious: No
  Sender: FDA-Public Use
  Company Number: US-PFIZER INC-2011170374

PATIENT
  Sex: Female
  Weight: 79.365 kg

DRUGS (2)
  1. ADVIL COLD AND SINUS [Suspect]
     Indication: SINUS HEADACHE
  2. ADVIL COLD AND SINUS [Suspect]
     Indication: NASOPHARYNGITIS
     Dosage: 2 CAPLETS, FREQUENCY UNKNOWN
     Route: 048
     Dates: start: 20110723, end: 20110724

REACTIONS (2)
  - INSOMNIA [None]
  - PALPITATIONS [None]
